FAERS Safety Report 23035220 (Version 2)
Quarter: 2023Q4

REPORT INFORMATION
  Report Type: Report from Study
  Country: US (occurrence: US)
  Receive Date: 20231005
  Receipt Date: 20231124
  Transmission Date: 20240110
  Serious: Yes (Congenital Anomaly, Other)
  Sender: FDA-Public Use
  Company Number: US-GILEAD-2023-0646254

PATIENT

DRUGS (3)
  1. EMTRICITABINE\TENOFOVIR DISOPROXIL FUMARATE [Suspect]
     Active Substance: EMTRICITABINE\TENOFOVIR DISOPROXIL FUMARATE
     Indication: HIV infection
     Dosage: UNK
     Route: 064
  2. ATAZANAVIR [Concomitant]
     Active Substance: ATAZANAVIR
  3. RITONAVIR [Concomitant]
     Active Substance: RITONAVIR

REACTIONS (2)
  - Congenital megacolon [Unknown]
  - Foetal exposure during pregnancy [Recovered/Resolved]
